FAERS Safety Report 11588668 (Version 2)
Quarter: 2015Q4

REPORT INFORMATION
  Report Type: Spontaneous
  Country: SK (occurrence: SK)
  Receive Date: 20151002
  Receipt Date: 20151016
  Transmission Date: 20160304
  Serious: Yes (Hospitalization)
  Sender: FDA-Public Use
  Company Number: SK-ABBVIE-15P-260-1473139-00

PATIENT
  Age: 22 Year
  Sex: Female

DRUGS (7)
  1. CORTICOSTEROIDS [Concomitant]
     Active Substance: CORTICOSTEROID NOS
     Indication: PRODUCT USED FOR UNKNOWN INDICATION
  2. 5-AMINOSALICYLIC ACID [Concomitant]
     Active Substance: MESALAMINE
     Indication: PRODUCT USED FOR UNKNOWN INDICATION
     Dates: start: 200804
  3. SULFASALAZINE. [Concomitant]
     Active Substance: SULFASALAZINE
     Indication: PRODUCT USED FOR UNKNOWN INDICATION
     Dates: start: 201406
  4. HUMIRA [Suspect]
     Active Substance: ADALIMUMAB
     Indication: CROHN^S DISEASE
     Route: 058
     Dates: start: 201406, end: 201501
  5. FOLIC ACID. [Concomitant]
     Active Substance: FOLIC ACID
     Indication: PRODUCT USED FOR UNKNOWN INDICATION
     Dates: start: 201406
  6. 5-AMINOSALICYLIC ACID [Concomitant]
     Active Substance: MESALAMINE
     Dates: start: 201009
  7. FERRO [Concomitant]
     Indication: ANAEMIA

REACTIONS (6)
  - General physical health deterioration [Recovered/Resolved]
  - Iron deficiency [Recovered/Resolved]
  - Diarrhoea [Recovered/Resolved]
  - Haematochezia [Recovered/Resolved]
  - Inflammation [Recovered/Resolved]
  - Pyrexia [Recovered/Resolved]

NARRATIVE: CASE EVENT DATE: 201501
